FAERS Safety Report 11335755 (Version 1)
Quarter: 2015Q3

REPORT INFORMATION
  Report Type: Spontaneous
  Country: US (occurrence: US)
  Receive Date: 20150804
  Receipt Date: 20150804
  Transmission Date: 20151125
  Serious: Yes (Hospitalization, Other)
  Sender: FDA-Public Use
  Company Number: US-PFIZER INC-2015238476

PATIENT
  Age: 2 Year
  Sex: Female

DRUGS (1)
  1. DILANTIN [Suspect]
     Active Substance: PHENYTOIN
     Indication: SEIZURE
     Dosage: 8 MG/KG, DAILY

REACTIONS (8)
  - Lymphadenopathy [Recovered/Resolved]
  - White blood cell count increased [Recovered/Resolved]
  - Drug-induced liver injury [Recovered/Resolved]
  - Eosinophil count increased [Recovered/Resolved]
  - Drug hypersensitivity [Recovered/Resolved]
  - Dermatitis exfoliative [Recovered/Resolved]
  - Pyrexia [Recovered/Resolved]
  - Lymphocyte morphology abnormal [Recovered/Resolved]
